FAERS Safety Report 5553407-3 (Version None)
Quarter: 2007Q4

REPORT INFORMATION
  Report Type: 
  Country: None (occurrence: None)
  Receive Date: 20071213
  Receipt Date: 20071210
  Transmission Date: 20080405
  Serious: Yes (Death, Hospitalization, Other)
  Sender: FDA-Public Use
  Company Number: FR-BRISTOL-MYERS SQUIBB COMPANY-14008510

PATIENT
  Age: 64 Year
  Sex: Male

DRUGS (2)
  1. SINEMET [Suspect]
     Indication: PARKINSON'S DISEASE
     Dates: start: 20050101
  2. REQUIP [Suspect]
     Indication: PARKINSON'S DISEASE
     Dates: start: 20050101

REACTIONS (5)
  - COMPLETED SUICIDE [None]
  - CONFUSIONAL STATE [None]
  - DEPENDENCE [None]
  - SUICIDE ATTEMPT [None]
  - TENDON RUPTURE [None]
